FAERS Safety Report 7399398-4 (Version None)
Quarter: 2011Q2

REPORT INFORMATION
  Report Type: 
  Country: None (occurrence: None)
  Receive Date: 20110407
  Receipt Date: 20110324
  Transmission Date: 20111010
  Serious: Yes (Hospitalization, Other)
  Sender: FDA-Public Use
  Company Number: PHHY2010DE15507

PATIENT
  Sex: Male

DRUGS (1)
  1. GLEEVEC [Suspect]
     Indication: GASTROINTESTINAL STROMAL TUMOUR
     Dosage: 400 MG, DAILY
     Route: 048
     Dates: start: 20090907

REACTIONS (8)
  - LEUKOCYTOSIS [None]
  - GASTROINTESTINAL STROMAL TUMOUR [None]
  - NEOPLASM MALIGNANT [None]
  - FLUID RETENTION [None]
  - RENAL HAEMORRHAGE [None]
  - ABDOMINAL ADHESIONS [None]
  - METASTATIC NEOPLASM [None]
  - THROMBOCYTOSIS [None]
